FAERS Safety Report 24624023 (Version 1)
Quarter: 2024Q4

REPORT INFORMATION
  Report Type: Spontaneous
  Country: KW (occurrence: KW)
  Receive Date: 20241115
  Receipt Date: 20241115
  Transmission Date: 20250115
  Serious: No
  Sender: ALKEM
  Company Number: KW-ALKEM LABORATORIES LIMITED-KW-ALKEM-2023-16753

PATIENT
  Age: 10 Year
  Sex: Male
  Weight: 35 kg

DRUGS (3)
  1. METHYLPHENIDATE HYDROCHLORIDE [Suspect]
     Active Substance: METHYLPHENIDATE HYDROCHLORIDE
     Indication: Attention deficit hyperactivity disorder
     Dosage: 15 MILLIGRAM, QD, (ON 3 DIVIDED DOSES) (IMMEDIATE RELEASE)
     Route: 065
  2. METHYLPHENIDATE HYDROCHLORIDE [Suspect]
     Active Substance: METHYLPHENIDATE HYDROCHLORIDE
     Dosage: 18 MILLIGRAM, (OSMOTIC RELEASE ORAL SYSTEM)
     Route: 048
  3. METHYLPHENIDATE HYDROCHLORIDE [Suspect]
     Active Substance: METHYLPHENIDATE HYDROCHLORIDE
     Dosage: 30 MILLIGRAM, QD, (DIVIDED) FOR WEEK-2, ESCALATED DOSE
     Route: 065

REACTIONS (3)
  - Myoclonus [Recovered/Resolved]
  - Nail picking [Recovered/Resolved]
  - Enuresis [Recovered/Resolved]
